FAERS Safety Report 10899608 (Version 1)
Quarter: 2015Q1

REPORT INFORMATION
  Report Type: Spontaneous
  Country: TR (occurrence: TR)
  Receive Date: 20150309
  Receipt Date: 20150309
  Transmission Date: 20150721
  Serious: Yes (Other)
  Sender: FDA-Public Use
  Company Number: PHHY2015TR024616

PATIENT
  Age: 7 Year
  Sex: Male

DRUGS (2)
  1. GENTAMICIN. [Suspect]
     Active Substance: GENTAMICIN
     Indication: NOSOCOMIAL INFECTION
     Route: 065
  2. COLISTIN [Suspect]
     Active Substance: COLISTIN
     Indication: NOSOCOMIAL INFECTION
     Route: 042

REACTIONS (1)
  - Acute kidney injury [Unknown]
